FAERS Safety Report 6980167-1 (Version None)
Quarter: 2010Q3

REPORT INFORMATION
  Report Type: 
  Country: None (occurrence: None)
  Receive Date: 20100909
  Receipt Date: 20100826
  Transmission Date: 20110219
  Serious: Yes (Disabling)
  Sender: FDA-Public Use
  Company Number: 688034

PATIENT
  Sex: Male
  Weight: 92 kg

DRUGS (2)
  1. OXALIPLATIN [Suspect]
     Indication: COLON CANCER
     Dosage: 50 MG MILLIGRAM(S), INTRAVENOUS
     Route: 042
     Dates: start: 20100101
  2. XELODA [Suspect]
     Indication: COLON CANCER
     Dosage: 500 MG MILLIGRAM(S), 1 DAY
     Dates: start: 20100101

REACTIONS (2)
  - BLINDNESS UNILATERAL [None]
  - OPTIC ISCHAEMIC NEUROPATHY [None]
